FAERS Safety Report 17520408 (Version 2)
Quarter: 2020Q1

REPORT INFORMATION
  Report Type: Spontaneous
  Country: US (occurrence: US)
  Receive Date: 20200309
  Receipt Date: 20200317
  Transmission Date: 20200409
  Serious: No
  Sender: FDA-Public Use
  Company Number: US-ACTELION-A-NJ2020-202971

PATIENT
  Age: 58 Year
  Sex: Male
  Weight: 90.7 kg

DRUGS (4)
  1. SILDENAFIL CITRATE. [Concomitant]
     Active Substance: SILDENAFIL CITRATE
  2. UPTRAVI [Suspect]
     Active Substance: SELEXIPAG
     Indication: PULMONARY HYPERTENSION
     Dosage: 200 MCG, BID
     Route: 048
  3. UPTRAVI [Suspect]
     Active Substance: SELEXIPAG
     Dosage: 400 UNK
     Route: 048
  4. UPTRAVI [Suspect]
     Active Substance: SELEXIPAG
     Dosage: 200 MCG, QID
     Route: 048
     Dates: start: 20200229, end: 20200229

REACTIONS (5)
  - Nausea [Unknown]
  - Pain in jaw [Unknown]
  - Diarrhoea [Unknown]
  - Incorrect dose administered [Unknown]
  - Tremor [Unknown]

NARRATIVE: CASE EVENT DATE: 20200229
